FAERS Safety Report 8272192-8 (Version None)
Quarter: 2012Q2

REPORT INFORMATION
  Report Type: 
  Country: None (occurrence: None)
  Receive Date: 20120410
  Receipt Date: 20120409
  Transmission Date: 20120825
  Serious: Yes (Death)
  Sender: FDA-Public Use
  Company Number: US-TEVA-330134USA

PATIENT
  Sex: Male

DRUGS (1)
  1. LOSARTAN POTASSIUM AND HYDROCHLOROTHIAZIDE [Suspect]
     Dosage: 100 MG / 25 MG
     Dates: end: 20120301

REACTIONS (4)
  - CONFUSIONAL STATE [None]
  - CARDIAC ARREST [None]
  - NERVOUSNESS [None]
  - RESTLESSNESS [None]
